FAERS Safety Report 24324972 (Version 6)
Quarter: 2025Q3

REPORT INFORMATION
  Report Type: Report from Study
  Country: EU (occurrence: EU)
  Receive Date: 20240916
  Receipt Date: 20250903
  Transmission Date: 20251020
  Serious: Yes (Death, Hospitalization, Other)
  Sender: ALEXION PHARMACEUTICALS
  Company Number: 2024A195478

PATIENT
  Age: 77 Year
  Sex: Female
  Weight: 66 kg

DRUGS (3)
  1. DURVALUMAB [Suspect]
     Active Substance: DURVALUMAB
     Indication: Hepatobiliary cancer
     Dates: start: 20240813, end: 20240813
  2. DURVALUMAB [Suspect]
     Active Substance: DURVALUMAB
     Dates: start: 20240910, end: 20240910
  3. TREMELIMUMAB [Suspect]
     Active Substance: TREMELIMUMAB
     Indication: Hepatobiliary cancer
     Dates: start: 20240813, end: 20240813

REACTIONS (7)
  - Hepatic failure [Fatal]
  - Dehydration [Recovering/Resolving]
  - Renal failure [Recovering/Resolving]
  - Gastritis [Not Recovered/Not Resolved]
  - Urinary tract infection [Recovering/Resolving]
  - Rash maculo-papular [Not Recovered/Not Resolved]
  - Decreased appetite [Not Recovered/Not Resolved]

NARRATIVE: CASE EVENT DATE: 20240824
